FAERS Safety Report 4621042-7 (Version None)
Quarter: 2005Q1

REPORT INFORMATION
  Report Type: 
  Country: None (occurrence: None)
  Receive Date: 20050325
  Receipt Date: 20050314
  Transmission Date: 20050727
  Serious: Yes (Hospitalization)
  Sender: FDA-Public Use
  Company Number: 170432

PATIENT
  Age: 61 Year
  Sex: Male

DRUGS (4)
  1. AVONEX [Suspect]
     Indication: MULTIPLE SCLEROSIS
     Dosage: 30 UG; QW; IM
     Route: 030
     Dates: start: 19980901, end: 20030307
  2. LIORESAL [Concomitant]
  3. XATRAL [Concomitant]
  4. NEURONTIN [Concomitant]

REACTIONS (4)
  - CUTANEOUS SARCOIDOSIS [None]
  - LYMPHADENOPATHY [None]
  - PULMONARY SARCOIDOSIS [None]
  - RESTRICTIVE PULMONARY DISEASE [None]
